APPROVED DRUG PRODUCT: AMITRIPTYLINE HYDROCHLORIDE
Active Ingredient: AMITRIPTYLINE HYDROCHLORIDE
Strength: 10MG
Dosage Form/Route: TABLET;ORAL
Application: A213999 | Product #001 | TE Code: AB
Applicant: MANKIND PHARMA LTD
Approved: Feb 19, 2021 | RLD: No | RS: No | Type: RX